FAERS Safety Report 8062920-9 (Version None)
Quarter: 2012Q1

REPORT INFORMATION
  Report Type: 
  Country: None (occurrence: None)
  Receive Date: 20120123
  Receipt Date: 20120123
  Transmission Date: 20120608
  Serious: Yes (Other)
  Sender: FDA-Public Use
  Company Number: None

PATIENT
  Age: 5 Year
  Sex: Male
  Weight: 19.504 kg

DRUGS (2)
  1. SINGULAIR [Suspect]
     Indication: MULTIPLE ALLERGIES
     Dosage: 4 MG
     Route: 048
  2. SINGULAIR [Suspect]
     Indication: ASTHMA
     Dosage: 4 MG
     Route: 048

REACTIONS (5)
  - DEPRESSION [None]
  - SUICIDAL IDEATION [None]
  - IRRITABILITY [None]
  - MOOD SWINGS [None]
  - SELF ESTEEM DECREASED [None]
